FAERS Safety Report 6713615-2 (Version None)
Quarter: 2010Q2

REPORT INFORMATION
  Report Type: 
  Country: None (occurrence: None)
  Receive Date: 20100506
  Receipt Date: 20100429
  Transmission Date: 20101027
  Serious: Yes (Life-Threatening, Disabling)
  Sender: FDA-Public Use
  Company Number: A0856364A

PATIENT
  Sex: Male

DRUGS (2)
  1. AVODART [Suspect]
     Indication: DRUG USE FOR UNKNOWN INDICATION
     Dosage: .5MG PER DAY
     Route: 048
     Dates: start: 20100305, end: 20100418
  2. ALFUZOSIN HCL [Concomitant]
     Dosage: 10MG PER DAY
     Route: 048
     Dates: start: 20100405, end: 20100418

REACTIONS (2)
  - DYSURIA [None]
  - POLLAKIURIA [None]
